FAERS Safety Report 21892429 (Version 1)
Quarter: 2023Q1

REPORT INFORMATION
  Report Type: Report from Study
  Country: CA (occurrence: CA)
  Receive Date: 20230120
  Receipt Date: 20230120
  Transmission Date: 20230417
  Serious: Yes (Hospitalization)
  Sender: FDA-Public Use
  Company Number: CA-JAZZ-2022-CA-001125

PATIENT
  Sex: Female

DRUGS (29)
  1. XYREM [Suspect]
     Active Substance: SODIUM OXYBATE
     Indication: Cataplexy
     Dosage: DOSE : 4.5G FREQUENCY : DIVIDED IN TWO EQUAL DOSES (QHS AND 2.5 - 4HRS AFTER 1ST DOSE)
     Route: 048
     Dates: start: 20181105, end: 20181118
  2. XYREM [Suspect]
     Active Substance: SODIUM OXYBATE
     Indication: Narcolepsy
     Dosage: 3 GRAM, BID
     Route: 048
     Dates: start: 20181119, end: 20181203
  3. XYREM [Suspect]
     Active Substance: SODIUM OXYBATE
     Dosage: 3.75 GRAM, BID
     Route: 048
     Dates: start: 20181204, end: 20181218
  4. XYREM [Suspect]
     Active Substance: SODIUM OXYBATE
     Dosage: DOSE : 9G FREQUENCY : DIVIDED IN TWO EQUAL DOSES (QHS AND 2.5 - 4HRS AFTER 1ST DOSE)
     Route: 048
     Dates: start: 20181219, end: 202103
  5. XYREM [Suspect]
     Active Substance: SODIUM OXYBATE
     Dosage: 3 GRAM, BID
     Route: 048
     Dates: start: 20211123, end: 20211123
  6. XYREM [Suspect]
     Active Substance: SODIUM OXYBATE
     Dosage: 3.75 GRAM, BID
     Route: 048
     Dates: start: 20211124, end: 20211124
  7. XYREM [Suspect]
     Active Substance: SODIUM OXYBATE
     Dosage: 4.5 GRAM, BID
     Route: 048
     Dates: start: 20211125
  8. PANTOPRAZOLE [Concomitant]
     Active Substance: PANTOPRAZOLE
     Indication: Product used for unknown indication
     Dosage: UNK
  9. PANTOPRAZOLE [Concomitant]
     Active Substance: PANTOPRAZOLE
     Dosage: DOSE : 40 MG
  10. PREGABALIN [Concomitant]
     Active Substance: PREGABALIN
     Indication: Product used for unknown indication
     Dosage: 150 MILLIGRAM, BID
  11. PREGABALIN [Concomitant]
     Active Substance: PREGABALIN
     Dosage: 200 MILLIGRAM
  12. PREGABALIN [Concomitant]
     Active Substance: PREGABALIN
     Dosage: 50 MILLIGRAM, BID
  13. DEXEDRINE [Concomitant]
     Active Substance: DEXTROAMPHETAMINE SULFATE
     Indication: Product used for unknown indication
     Dosage: DOSE : 5 MG
  14. DEXEDRINE [Concomitant]
     Active Substance: DEXTROAMPHETAMINE SULFATE
     Dosage: 40 MILLIGRAM
  15. DEXEDRINE [Concomitant]
     Active Substance: DEXTROAMPHETAMINE SULFATE
     Dosage: 20 MILLIGRAM
  16. DEXEDRINE [Concomitant]
     Active Substance: DEXTROAMPHETAMINE SULFATE
     Dosage: 10 MILLIGRAM
  17. DEXEDRINE [Concomitant]
     Active Substance: DEXTROAMPHETAMINE SULFATE
     Dosage: 60 MILLIGRAM
  18. ACETAMINOPHEN [Concomitant]
     Active Substance: ACETAMINOPHEN
     Indication: Product used for unknown indication
     Dosage: DOSE : PREGABALIN 200 MG TWICE DAILY (100 MG AM AND 100MG PM)
  19. DULOXETINE [Concomitant]
     Active Substance: DULOXETINE
     Indication: Product used for unknown indication
     Dosage: 60 MILLIGRAM
  20. OMEGA 3 BOUTY [Concomitant]
     Indication: Product used for unknown indication
     Dosage: UNK
  21. OMEGA 3 BOUTY [Concomitant]
     Dosage: DOSE : UNKNOWN
  22. VITAMIN B CO [Concomitant]
     Indication: Product used for unknown indication
     Dosage: UNK
  23. VITAMIN C PALMITATE [Concomitant]
     Indication: Product used for unknown indication
     Dosage: UNK
  24. RISPERIDONE [Concomitant]
     Active Substance: RISPERIDONE
     Indication: Product used for unknown indication
     Dosage: 0.5 MILLIGRAM
  25. ADVIL [Concomitant]
     Active Substance: IBUPROFEN
     Indication: Product used for unknown indication
  26. CELEBREX [Concomitant]
     Active Substance: CELECOXIB
     Indication: Product used for unknown indication
  27. CHOLECALCIFEROL [Concomitant]
     Active Substance: CHOLECALCIFEROL
     Indication: Product used for unknown indication
     Dosage: 2000 IU
  28. TEMAZEPAM [Concomitant]
     Active Substance: TEMAZEPAM
     Indication: Product used for unknown indication
     Dosage: 60 MILLIGRAM
  29. FLUOXETINE [Concomitant]
     Active Substance: FLUOXETINE HYDROCHLORIDE
     Indication: Product used for unknown indication
     Dosage: UNK

REACTIONS (6)
  - Hospitalisation [Unknown]
  - Anxiety [Unknown]
  - Memory impairment [Unknown]
  - Product dose omission issue [Unknown]
  - Product administration interrupted [Unknown]
  - Intentional product use issue [Unknown]
